FAERS Safety Report 7777035-4 (Version None)
Quarter: 2011Q3

REPORT INFORMATION
  Report Type: 
  Country: None (occurrence: None)
  Receive Date: 20110926
  Receipt Date: 20110926
  Transmission Date: 20111222
  Serious: No
  Sender: FDA-Public Use
  Company Number: None

PATIENT
  Age: 68 Year
  Sex: Male
  Weight: 84.821 kg

DRUGS (1)
  1. ACTONEL [Suspect]
     Indication: BONE DENSITY DECREASED
     Dosage: 35 MG
     Route: 048
     Dates: start: 20030626, end: 20081215

REACTIONS (2)
  - BONE LOSS [None]
  - TEMPOROMANDIBULAR JOINT SYNDROME [None]
